FAERS Safety Report 24806141 (Version 2)
Quarter: 2025Q1

REPORT INFORMATION
  Report Type: Spontaneous
  Country: US (occurrence: US)
  Receive Date: 20250103
  Receipt Date: 20250207
  Transmission Date: 20250409
  Serious: No
  Sender: PFIZER
  Company Number: US-PFIZER INC-PV202400170635

PATIENT
  Age: 54 Year
  Sex: Male

DRUGS (5)
  1. XELJANZ XR [Suspect]
     Active Substance: TOFACITINIB CITRATE
     Indication: Rheumatoid arthritis
     Dates: start: 2023
  2. XELJANZ XR [Suspect]
     Active Substance: TOFACITINIB CITRATE
  3. XELJANZ XR [Suspect]
     Active Substance: TOFACITINIB CITRATE
     Dosage: 11 MG, 1X/DAY
     Route: 048
  4. XELJANZ XR [Suspect]
     Active Substance: TOFACITINIB CITRATE
     Dosage: 11 MG, 1X/DAY
     Route: 048
  5. LEFLUNOMIDE [Concomitant]
     Active Substance: LEFLUNOMIDE

REACTIONS (7)
  - Psoriasis [Unknown]
  - Fungal infection [Recovered/Resolved]
  - Illness [Unknown]
  - Nasopharyngitis [Unknown]
  - Blood testosterone decreased [Unknown]
  - Intentional dose omission [Unknown]
  - Product dose omission in error [Unknown]
